FAERS Safety Report 5705946-X (Version None)
Quarter: 2008Q2

REPORT INFORMATION
  Report Type: 
  Country: None (occurrence: None)
  Receive Date: 20080411
  Receipt Date: 20080401
  Transmission Date: 20081010
  Serious: Yes (Other)
  Sender: FDA-Public Use
  Company Number: 2008BI005931

PATIENT
  Age: 50 Year
  Sex: Female

DRUGS (4)
  1. TYSABRI [Suspect]
     Indication: MULTIPLE SCLEROSIS
     Dosage: 300 NG;QM;IV
     Route: 042
     Dates: start: 20070925, end: 20080225
  2. NAPROXEN [Concomitant]
  3. KLONOPIN [Concomitant]
  4. CYMBALTA [Concomitant]

REACTIONS (5)
  - ARTHRALGIA [None]
  - EOSINOPHIL COUNT INCREASED [None]
  - HAEMOCHROMATOSIS [None]
  - HEPATIC CONGESTION [None]
  - HEPATIC STEATOSIS [None]
